FAERS Safety Report 8883364 (Version 4)
Quarter: 2016Q2

REPORT INFORMATION
  Report Type: Report from Study
  Country: NL (occurrence: NL)
  Receive Date: 20121102
  Receipt Date: 20160426
  Transmission Date: 20160815
  Serious: Yes (Hospitalization)
  Sender: FDA-Public Use
  Company Number: NL-JNJFOC-20120814649

PATIENT
  Age: 24 Year
  Sex: Female
  Weight: 39 kg

DRUGS (11)
  1. REMICADE [Suspect]
     Active Substance: INFLIXIMAB
     Indication: COLITIS ULCERATIVE
     Route: 042
     Dates: start: 20101230
  2. REMICADE [Suspect]
     Active Substance: INFLIXIMAB
     Indication: COLITIS ULCERATIVE
     Dosage: 1ST DOSE
     Route: 042
     Dates: start: 20101215
  3. CALCICHEW D3 [Concomitant]
     Active Substance: CALCIUM\CHOLECALCIFEROL
     Dosage: DOSE ^500 MG/ 400IE^
     Route: 048
  4. REMICADE [Suspect]
     Active Substance: INFLIXIMAB
     Indication: COLITIS ULCERATIVE
     Route: 042
     Dates: start: 20110127
  5. DICLOFENAC [Concomitant]
     Active Substance: DICLOFENAC
  6. POTASSIUM [Concomitant]
     Active Substance: POTASSIUM
  7. ANTAGEL [Concomitant]
  8. REMICADE [Suspect]
     Active Substance: INFLIXIMAB
     Indication: COLITIS ULCERATIVE
     Dosage: LAST DOSE
     Route: 042
     Dates: start: 20110324, end: 20110324
  9. PARACETAMOL [Concomitant]
     Active Substance: ACETAMINOPHEN
  10. ONDANSETRON [Concomitant]
     Active Substance: ONDANSETRON
  11. OMEPRAZOLE. [Concomitant]
     Active Substance: OMEPRAZOLE

REACTIONS (1)
  - Ileus [Recovered/Resolved]

NARRATIVE: CASE EVENT DATE: 20120125
